FAERS Safety Report 24830992 (Version 1)
Quarter: 2025Q1

REPORT INFORMATION
  Report Type: Other
  Country: US (occurrence: US)
  Receive Date: 20250110
  Receipt Date: 20250110
  Transmission Date: 20250409
  Serious: Yes (Life-Threatening)
  Sender: B BRAUN
  Company Number: US-B.Braun Medical Inc.-2168798

PATIENT
  Age: 58 Year
  Sex: Female

DRUGS (6)
  1. MEROPENEM [Suspect]
     Active Substance: MEROPENEM
     Indication: Antibiotic therapy
  2. UNSPECIFIED INGREDIENT [Suspect]
     Active Substance: UNSPECIFIED INGREDIENT
  3. UNSPECIFIED INGREDIENT [Concomitant]
     Active Substance: UNSPECIFIED INGREDIENT
  4. OXACILLIN [Suspect]
     Active Substance: OXACILLIN SODIUM
  5. MICAFUNGIN [Suspect]
     Active Substance: MICAFUNGIN SODIUM
  6. PIPERACILLIN AND TAZOBACTAM [Suspect]
     Active Substance: PIPERACILLIN SODIUM\TAZOBACTAM SODIUM

REACTIONS (1)
  - Drug ineffective [Unknown]
